FAERS Safety Report 5464449-0 (Version None)
Quarter: 2007Q3

REPORT INFORMATION
  Report Type: 
  Country: None (occurrence: None)
  Receive Date: 20070921
  Receipt Date: 20070917
  Transmission Date: 20080115
  Serious: Yes (Other)
  Sender: FDA-Public Use
  Company Number: US-SANOFI-SYNTHELABO-A03200705614

PATIENT
  Sex: Male

DRUGS (2)
  1. PLAVIX [Suspect]
     Indication: VASCULAR GRAFT
     Route: 048
  2. PLAVIX [Suspect]
     Route: 048

REACTIONS (5)
  - ANEURYSM [None]
  - CONTUSION [None]
  - HAEMORRHAGE [None]
  - LEG AMPUTATION [None]
  - THROMBOSIS [None]
